FAERS Safety Report 20231898 (Version 3)
Quarter: 2024Q1

REPORT INFORMATION
  Report Type: Report from Study
  Country: ZA (occurrence: ZA)
  Receive Date: 20211227
  Receipt Date: 20240220
  Transmission Date: 20240410
  Serious: Yes (Other)
  Sender: FDA-Public Use
  Company Number: ZA-NOVARTISPH-NVSC2021ZA268039

PATIENT
  Age: 76 Year
  Sex: Female

DRUGS (3)
  1. BROLUCIZUMAB [Suspect]
     Active Substance: BROLUCIZUMAB
     Indication: Age-related macular degeneration
     Dosage: UNK (LEFT EYE)
     Route: 065
     Dates: start: 20210830
  2. BROLUCIZUMAB [Suspect]
     Active Substance: BROLUCIZUMAB
     Dosage: UNK (LEFT EYE)
     Route: 065
     Dates: start: 20211001
  3. BROLUCIZUMAB [Suspect]
     Active Substance: BROLUCIZUMAB
     Dosage: 27.6 MG, QMO (27.6 MG IN 0.23 ML)
     Route: 047
     Dates: start: 20211105

REACTIONS (4)
  - Macular degeneration [Unknown]
  - Injection site haemorrhage [Not Recovered/Not Resolved]
  - Injection site discolouration [Not Recovered/Not Resolved]
  - Drug ineffective [Not Recovered/Not Resolved]

NARRATIVE: CASE EVENT DATE: 20211105
